FAERS Safety Report 6168692-7 (Version None)
Quarter: 2009Q2

REPORT INFORMATION
  Report Type: 
  Country: None (occurrence: None)
  Receive Date: 20090427
  Receipt Date: 20090415
  Transmission Date: 20091009
  Serious: Yes (Hospitalization, Other)
  Sender: FDA-Public Use
  Company Number: JP-PFIZER INC-2009189326

PATIENT

DRUGS (5)
  1. SUNITINIB MALATE [Suspect]
     Indication: RENAL CELL CARCINOMA
     Dosage: 50 MG, 1X/DAY
     Route: 048
     Dates: start: 20090113
  2. ALLOPURINOL [Concomitant]
     Dosage: UNK
     Route: 048
     Dates: start: 20080130
  3. JUVELA NICOTINATE [Concomitant]
     Dosage: UNK
     Route: 048
     Dates: start: 20080725
  4. URSO 250 [Concomitant]
     Dosage: UNK
     Route: 048
     Dates: start: 20080725
  5. BIOFERMIN [Concomitant]
     Dosage: UNK
     Route: 048
     Dates: start: 20081008

REACTIONS (4)
  - ANOREXIA [None]
  - DYSURIA [None]
  - PLATELET COUNT DECREASED [None]
  - PYREXIA [None]
